FAERS Safety Report 4322086-5 (Version None)
Quarter: 2004Q1

REPORT INFORMATION
  Report Type: 
  Country: None (occurrence: None)
  Receive Date: 20040323
  Receipt Date: 20040322
  Transmission Date: 20041129
  Serious: Yes (Hospitalization)
  Sender: FDA-Public Use
  Company Number: US-GLAXOSMITHKLINE-A0503879A

PATIENT
  Age: 41 Year
  Sex: Male

DRUGS (5)
  1. ZIAGEN [Suspect]
     Indication: HIV INFECTION
     Dosage: 300MG TWICE PER DAY
     Route: 048
  2. CRIXIVAN [Concomitant]
  3. NORVIR [Concomitant]
  4. ACYCLOVIR [Concomitant]
  5. SEPTRA [Concomitant]

REACTIONS (8)
  - DYSPNOEA [None]
  - FATIGUE [None]
  - FEELING ABNORMAL [None]
  - HYPERSENSITIVITY [None]
  - NIGHT SWEATS [None]
  - RASH GENERALISED [None]
  - SWELLING [None]
  - VOMITING [None]
